FAERS Safety Report 26064400 (Version 2)
Quarter: 2025Q4

REPORT INFORMATION
  Report Type: Spontaneous
  Country: US (occurrence: US)
  Receive Date: 20251119
  Receipt Date: 20251130
  Transmission Date: 20260117
  Serious: No
  Sender: SANOFI AVENTIS
  Company Number: US-SA-2025SA341224

PATIENT
  Age: 36 Year
  Sex: Female

DRUGS (1)
  1. DUPIXENT [Suspect]
     Active Substance: DUPILUMAB
     Indication: Nasal polyps
     Dosage: 300 MG, QOW
     Route: 058

REACTIONS (7)
  - Nasal congestion [Unknown]
  - Inappropriate schedule of product administration [Unknown]
  - Asthma [Unknown]
  - Dyspnoea [Unknown]
  - Eczema [Unknown]
  - Injection site pain [Unknown]
  - Lack of injection site rotation [Unknown]
